FAERS Safety Report 10881857 (Version 2)
Quarter: 2015Q1

REPORT INFORMATION
  Report Type: Spontaneous
  Country: US (occurrence: US)
  Receive Date: 20150303
  Receipt Date: 20150303
  Transmission Date: 20150721
  Serious: Yes (Hospitalization, Disabling, Other)
  Sender: FDA-Public Use
  Company Number: US-JNJFOC-20150213841

PATIENT
  Sex: Male
  Weight: 72.58 kg

DRUGS (1)
  1. VERMOX [Suspect]
     Active Substance: MEBENDAZOLE
     Indication: HOOKWORM INFECTION
     Route: 065
     Dates: start: 201104

REACTIONS (6)
  - Gastrointestinal fungal infection [Not Recovered/Not Resolved]
  - Bedridden [Not Recovered/Not Resolved]
  - Meningitis [Not Recovered/Not Resolved]
  - Hookworm infection [Not Recovered/Not Resolved]
  - Fungal endocarditis [Not Recovered/Not Resolved]
  - Cerebrovascular accident [Recovered/Resolved]

NARRATIVE: CASE EVENT DATE: 2011
